FAERS Safety Report 4757527-2 (Version None)
Quarter: 2005Q3

REPORT INFORMATION
  Report Type: 
  Country: None (occurrence: None)
  Receive Date: 20050831
  Receipt Date: 20050414
  Transmission Date: 20060218
  Serious: Yes (Other)
  Sender: FDA-Public Use
  Company Number: US-MERCK-0504USA02842

PATIENT
  Age: 57 Year
  Sex: Female
  Weight: 73 kg

DRUGS (4)
  1. VIOXX [Suspect]
     Indication: OSTEOARTHRITIS
     Route: 048
     Dates: start: 20000801
  2. VIOXX [Suspect]
     Route: 048
  3. LASIX [Concomitant]
     Route: 065
     Dates: start: 20000714, end: 20011213
  4. ZOCOR [Concomitant]
     Route: 065
     Dates: start: 20001011

REACTIONS (5)
  - CORONARY ARTERY OCCLUSION [None]
  - DIFFICULTY IN WALKING [None]
  - FATIGUE [None]
  - INJURY [None]
  - MYOCARDIAL INFARCTION [None]
